FAERS Safety Report 15697806 (Version 1)
Quarter: 2018Q4

REPORT INFORMATION
  Report Type: Spontaneous
  Country: US (occurrence: US)
  Receive Date: 20181126
  Receipt Date: 20181126
  Transmission Date: 20190205
  Serious: Yes (Other)
  Sender: FDA-Public Use
  Company Number: None

PATIENT
  Age: 62 Year
  Weight: 122.47 kg

DRUGS (8)
  1. LABETALOL [Concomitant]
     Active Substance: LABETALOL\LABETALOL HYDROCHLORIDE
  2. ANASTROZOLE 1MG DAILY [Suspect]
     Active Substance: ANASTROZOLE
     Indication: BREAST CANCER
     Route: 048
  3. HCTZ [Concomitant]
     Active Substance: HYDROCHLOROTHIAZIDE
  4. ALTACE [Concomitant]
     Active Substance: RAMIPRIL
  5. VERAPAMIL [Suspect]
     Active Substance: VERAPAMIL HYDROCHLORIDE
  6. ASA [Suspect]
     Active Substance: ASPIRIN
  7. LIPITOR [Suspect]
     Active Substance: ATORVASTATIN CALCIUM
  8. PLAVIX [Concomitant]
     Active Substance: CLOPIDOGREL BISULFATE

REACTIONS (4)
  - Disease progression [None]
  - Carotid artery stenosis [None]
  - Hypertension [None]
  - Ex-tobacco user [None]

NARRATIVE: CASE EVENT DATE: 20181105
